FAERS Safety Report 5061801-2 (Version None)
Quarter: 2006Q3

REPORT INFORMATION
  Report Type: 
  Country: None (occurrence: None)
  Receive Date: 20060703
  Receipt Date: 20060120
  Transmission Date: 20061208
  Serious: No
  Sender: FDA-Public Use
  Company Number: 2006S1000733

PATIENT
  Age: 45 Year
  Sex: Male

DRUGS (9)
  1. CLOZAPINE [Suspect]
     Indication: SCHIZOPHRENIA, PARANOID TYPE
     Dosage: 300 MG;HS;ORAL
     Route: 048
     Dates: start: 20031201
  2. VALPROATE SODIUM [Concomitant]
  3. HALOPERIDOL [Concomitant]
  4. VITAMINS NOS [Concomitant]
  5. GEMFIBROZIL [Concomitant]
  6. ACETYLSALICYLIC ACID SRT [Concomitant]
  7. ZINC SULFATE [Concomitant]
  8. FISH OIL [Concomitant]
  9. SIMVASTATIN [Concomitant]

REACTIONS (1)
  - GRANULOCYTOPENIA [None]
